FAERS Safety Report 6933554-1 (Version None)
Quarter: 2010Q3

REPORT INFORMATION
  Report Type: 
  Country: None (occurrence: None)
  Receive Date: 20100820
  Receipt Date: 20100712
  Transmission Date: 20110219
  Serious: Yes (Hospitalization, Other)
  Sender: FDA-Public Use
  Company Number: ES-BRISTOL-MYERS SQUIBB COMPANY-15244023

PATIENT
  Age: 62 Year
  Sex: Male

DRUGS (6)
  1. IRBESARTAN [Suspect]
     Indication: HYPERTENSION
     Route: 048
     Dates: start: 20080101, end: 20100113
  2. ENALAPRIL MALEATE [Interacting]
     Indication: HYPERTENSION
     Route: 048
     Dates: start: 20100122, end: 20100131
  3. EMCONCOR [Interacting]
     Dosage: EMCONCOR CER .5 MG TABS
     Route: 048
     Dates: end: 20100113
  4. FUROSEMIDE [Interacting]
     Indication: HYPERTENSION
     Route: 048
     Dates: start: 20100121
  5. SINTROM [Concomitant]
     Indication: ATRIAL FIBRILLATION
     Dosage: SINTROM UNO 1 MG 60 TABS
     Route: 048
     Dates: start: 20050101, end: 20100113
  6. PANTOPRAZOLE [Concomitant]
     Route: 048

REACTIONS (2)
  - DRUG INTERACTION [None]
  - RENAL FAILURE [None]
